FAERS Safety Report 15648253 (Version 2)
Quarter: 2018Q4

REPORT INFORMATION
  Report Type: Spontaneous
  Country: BR (occurrence: BR)
  Receive Date: 20181122
  Receipt Date: 20181228
  Transmission Date: 20190205
  Serious: Yes (Hospitalization, Other)
  Sender: FDA-Public Use
  Company Number: BR-ARALEZ PHARMACEUTICALS R+D INC.-2018-ARA-002997

PATIENT
  Age: 52 Year
  Sex: Female

DRUGS (5)
  1. METOPROLOL SUCCINATE. [Suspect]
     Active Substance: METOPROLOL SUCCINATE
     Dosage: SWITCH IT TO SELOZOK 150 MG
     Route: 048
  2. METOPROLOL SUCCINATE. [Suspect]
     Active Substance: METOPROLOL SUCCINATE
     Indication: HEART RATE IRREGULAR
     Dosage: METOPROLOL SUCCINATE 50 MG FROM MEDLEY
     Route: 048
  3. METOPROLOL SUCCINATE. [Suspect]
     Active Substance: METOPROLOL SUCCINATE
     Dosage: SPLIT METOPROLOL SUCCINATE 100 MG TABLET IN HALF TO REACH 50 MG
     Route: 048
  4. METOPROLOL SUCCINATE. [Suspect]
     Active Substance: METOPROLOL SUCCINATE
     Dosage: INCREASED THE DOSAGE TO 150 MG, MEDLEY
     Route: 048
  5. METOPROLOL SUCCINATE. [Suspect]
     Active Substance: METOPROLOL SUCCINATE
     Indication: EMBOLIC STROKE
     Dosage: 50 MG UNK
     Route: 048
     Dates: start: 2016

REACTIONS (8)
  - Embolic stroke [Unknown]
  - Wrong technique in product usage process [Unknown]
  - Renal abscess [Unknown]
  - Renal disorder [Unknown]
  - Musculoskeletal stiffness [Unknown]
  - Heart rate increased [Recovered/Resolved]
  - Kidney enlargement [Unknown]
  - Off label use [Unknown]

NARRATIVE: CASE EVENT DATE: 2016
